FAERS Safety Report 4908123-5 (Version None)
Quarter: 2006Q1

REPORT INFORMATION
  Report Type: 
  Country: None (occurrence: None)
  Receive Date: 20060210
  Receipt Date: 20060131
  Transmission Date: 20060701
  Serious: Yes (Hospitalization)
  Sender: FDA-Public Use
  Company Number: FR-JNJFOC-20060200607

PATIENT
  Age: 10 Year
  Sex: Male

DRUGS (1)
  1. RISPERDAL [Suspect]
     Route: 048

REACTIONS (4)
  - ABDOMINAL PAIN [None]
  - HEADACHE [None]
  - OEDEMA [None]
  - PETECHIAE [None]
